FAERS Safety Report 12095758 (Version 1)
Quarter: 2016Q1

REPORT INFORMATION
  Report Type: Spontaneous
  Country: GB (occurrence: GB)
  Receive Date: 20160220
  Receipt Date: 20160220
  Transmission Date: 20160526
  Serious: Yes (Disabling, Other)
  Sender: FDA-Public Use
  Company Number: GB-HETERO LABS LTD-1048170

PATIENT
  Age: 83 Year
  Sex: Male
  Weight: 98 kg

DRUGS (1)
  1. LINEZOLID. [Suspect]
     Active Substance: LINEZOLID
     Indication: CELLULITIS
     Route: 042
     Dates: start: 20160123, end: 20160129

REACTIONS (4)
  - Disorientation [Unknown]
  - Confusional state [Unknown]
  - Hallucination [Unknown]
  - Delirium [Unknown]

NARRATIVE: CASE EVENT DATE: 20160126
